FAERS Safety Report 7403191-3 (Version None)
Quarter: 2011Q2

REPORT INFORMATION
  Report Type: 
  Country: None (occurrence: None)
  Receive Date: 20110408
  Receipt Date: 20110328
  Transmission Date: 20111010
  Serious: Yes (Hospitalization)
  Sender: FDA-Public Use
  Company Number: US-JNJFOC-20110311583

PATIENT
  Sex: Female
  Weight: 59.88 kg

DRUGS (6)
  1. LORTAB [Concomitant]
     Indication: PAIN
     Route: 048
  2. CYMBALTA [Concomitant]
     Route: 048
  3. REMICADE [Suspect]
     Indication: RHEUMATOID ARTHRITIS
     Route: 042
  4. GLIPIZIDE [Concomitant]
     Indication: DIABETES MELLITUS
     Route: 048
  5. TOPAMAX [Concomitant]
     Route: 048
  6. FOLIC ACID [Concomitant]
     Indication: NUTRITIONAL SUPPORT
     Route: 048

REACTIONS (10)
  - FEELING ABNORMAL [None]
  - PAIN [None]
  - MYALGIA [None]
  - BACK PAIN [None]
  - INSOMNIA [None]
  - BURNING SENSATION [None]
  - BEDRIDDEN [None]
  - HYPOKINESIA [None]
  - PNEUMONIA [None]
  - MEMORY IMPAIRMENT [None]
